FAERS Safety Report 8148760-0 (Version None)
Quarter: 2012Q1

REPORT INFORMATION
  Report Type: 
  Country: None (occurrence: None)
  Receive Date: 20120218
  Receipt Date: 20110701
  Transmission Date: 20120608
  Serious: No
  Sender: FDA-Public Use
  Company Number: US-ALLERGAN-1108986US

PATIENT
  Sex: Female

DRUGS (2)
  1. BOTOX COSMETIC [Suspect]
     Dosage: UNK UNITS
     Route: 030
     Dates: start: 20110630, end: 20110630
  2. BOTOX COSMETIC [Suspect]
     Indication: SKIN WRINKLING
     Dosage: UNK UNITS
     Route: 030
     Dates: start: 20110616, end: 20110616

REACTIONS (4)
  - SPEECH DISORDER [None]
  - ORTHOPNOEA [None]
  - DYSPNOEA [None]
  - CHEST PAIN [None]
